FAERS Safety Report 10059267 (Version 1)
Quarter: 2014Q2

REPORT INFORMATION
  Report Type: Spontaneous
  Country: US (occurrence: US)
  Receive Date: 20140404
  Receipt Date: 20140404
  Transmission Date: 20141212
  Serious: No
  Sender: FDA-Public Use
  Company Number: US-GLAXOSMITHKLINE-A1023214A

PATIENT
  Age: 62 Year
  Sex: Female

DRUGS (2)
  1. ALLI [Suspect]
     Indication: WEIGHT DECREASED
     Route: 048
     Dates: start: 201301
  2. MULTIVITAMIN [Suspect]
     Indication: SUPPLEMENTATION THERAPY
     Route: 048

REACTIONS (4)
  - Frequent bowel movements [Recovered/Resolved]
  - Diarrhoea [Recovered/Resolved]
  - Drug interaction [Not Recovered/Not Resolved]
  - Fatigue [Unknown]
